FAERS Safety Report 6925828-5 (Version None)
Quarter: 2010Q3

REPORT INFORMATION
  Report Type: 
  Country: None (occurrence: None)
  Receive Date: 20100816
  Receipt Date: 20100802
  Transmission Date: 20110219
  Serious: Yes (Hospitalization, Other)
  Sender: FDA-Public Use
  Company Number: US-ELI_LILLY_AND_COMPANY-US201006004714

PATIENT
  Sex: Male

DRUGS (15)
  1. HUMULIN N [Suspect]
     Indication: DIABETES MELLITUS
     Dosage: UNK, AS NEEDED
  2. HUMULIN R [Suspect]
     Indication: DIABETES MELLITUS
     Dosage: 170 U, DAILY (1/D)
  3. HUMULIN R [Suspect]
     Dosage: 170 U, DAILY (1/D)
  4. HUMULIN R [Suspect]
     Dosage: 170 U, DAILY (1/D)
  5. SYNTHROID [Concomitant]
  6. COUMADIN [Concomitant]
  7. TOPROL-XL [Concomitant]
  8. HYDRALAZINE [Concomitant]
  9. LISINOPRIL [Concomitant]
  10. TRICOR [Concomitant]
  11. SIMVASTATIN [Concomitant]
  12. GLIMEPIRIDE [Concomitant]
  13. HYDROCHLOROTHIAZIDE [Concomitant]
  14. OMEPRAZOLE [Concomitant]
  15. DILTIAZEM [Concomitant]

REACTIONS (11)
  - ARTHRITIS [None]
  - BACK PAIN [None]
  - BLOOD GLUCOSE DECREASED [None]
  - BLOOD GLUCOSE INCREASED [None]
  - GALLBLADDER DISORDER [None]
  - INCORRECT DOSE ADMINISTERED [None]
  - INTESTINAL OBSTRUCTION [None]
  - INTESTINAL PERFORATION [None]
  - OVERWEIGHT [None]
  - PAIN IN EXTREMITY [None]
  - SPINAL DISORDER [None]
